FAERS Safety Report 22198173 (Version 1)
Quarter: 2023Q2

REPORT INFORMATION
  Report Type: Spontaneous
  Country: US (occurrence: US)
  Receive Date: 20230411
  Receipt Date: 20230411
  Transmission Date: 20230722
  Serious: Yes (Other)
  Sender: FDA-Public Use
  Company Number: US-002147023-NVSC2023US080717

PATIENT
  Sex: Female

DRUGS (2)
  1. KYMRIAH [Suspect]
     Active Substance: TISAGENLECLEUCEL
     Indication: Acute lymphocytic leukaemia
     Dosage: UNK, ONCE/SINGLE, 0.1 X 10E8 CAR POSITIVE VIABLE T-CELLS (FDA APPROVED RANGE FOR PALL GREATER THAN 5
     Route: 042
     Dates: start: 202208
  2. JAKAFI [Suspect]
     Active Substance: RUXOLITINIB
     Indication: Product used for unknown indication
     Dosage: UNK
     Route: 065

REACTIONS (4)
  - Post-depletion B-cell recovery [Unknown]
  - Acute lymphocytic leukaemia recurrent [Unknown]
  - Nervous system disorder [Unknown]
  - Bone marrow disorder [Unknown]

NARRATIVE: CASE EVENT DATE: 20210303
